FAERS Safety Report 4375214-X (Version None)
Quarter: 2004Q2

REPORT INFORMATION
  Report Type: 
  Country: None (occurrence: None)
  Receive Date: 20040610
  Receipt Date: 20040602
  Transmission Date: 20050107
  Serious: Yes (Death, Other)
  Sender: FDA-Public Use
  Company Number: PHBS2004US07359

PATIENT
  Age: 61 Year

DRUGS (7)
  1. CYCLOSPORINE [Suspect]
     Indication: LUNG TRANSPLANT
     Route: 065
  2. METHYLPREDNISOLONE [Suspect]
     Indication: LUNG TRANSPLANT
     Route: 065
  3. AZATHIOPRINE [Suspect]
     Indication: LUNG TRANSPLANT
  4. CEFUROXIME [Concomitant]
  5. CLINDAMYCIN [Concomitant]
  6. PIPERACILLIN W/TAZOBACTAM [Concomitant]
  7. ACYCLOVIR [Concomitant]

REACTIONS (19)
  - ABSCESS [None]
  - CEREBRAL FUNGAL INFECTION [None]
  - COAGULOPATHY [None]
  - COCCIDIOIDOMYCOSIS [None]
  - DEPRESSED LEVEL OF CONSCIOUSNESS [None]
  - DIFFUSE ALVEOLAR DAMAGE [None]
  - HEPATIC FUNCTION ABNORMAL [None]
  - HYPOTENSION [None]
  - HYPOXIA [None]
  - LUNG INFILTRATION [None]
  - PANCREATIC DISORDER [None]
  - PERICARDITIS INFECTIVE [None]
  - PLEURAL FIBROSIS [None]
  - PNEUMONIA [None]
  - PYELONEPHRITIS ACUTE [None]
  - RENAL IMPAIRMENT [None]
  - STAPHYLOCOCCAL BACTERAEMIA [None]
  - STENOTROPHOMONAS INFECTION [None]
  - SYSTEMIC CANDIDA [None]
